FAERS Safety Report 9690272 (Version 2)
Quarter: 2014Q1

REPORT INFORMATION
  Report Type: Spontaneous
  Country: FR (occurrence: FR)
  Receive Date: 20131115
  Receipt Date: 20140204
  Transmission Date: 20141002
  Serious: Yes (Other)
  Sender: FDA-Public Use
  Company Number: FR-ROCHE-1302908

PATIENT
  Age: 93 Year
  Sex: Female

DRUGS (7)
  1. LUCENTIS [Suspect]
     Indication: AGE-RELATED MACULAR DEGENERATION
     Dosage: RIGHT EYE
     Route: 050
     Dates: start: 20111018, end: 201205
  2. LUCENTIS [Suspect]
     Route: 050
     Dates: start: 201111
  3. LUCENTIS [Suspect]
     Route: 050
     Dates: start: 201112
  4. LUCENTIS [Suspect]
     Route: 050
     Dates: start: 201203
  5. LUCENTIS [Suspect]
     Route: 050
     Dates: start: 201204
  6. LUCENTIS [Suspect]
     Route: 050
     Dates: start: 201205
  7. TRANXENE [Concomitant]
     Indication: SLEEP DISORDER

REACTIONS (5)
  - Colon cancer [Not Recovered/Not Resolved]
  - Weight decreased [Not Recovered/Not Resolved]
  - Head discomfort [Recovered/Resolved]
  - Anaemia [Unknown]
  - Asthenia [Unknown]
